APPROVED DRUG PRODUCT: CLARITHROMYCIN
Active Ingredient: CLARITHROMYCIN
Strength: 250MG
Dosage Form/Route: TABLET;ORAL
Application: A065489 | Product #001 | TE Code: AB
Applicant: AUROBINDO PHARMA LTD
Approved: Jul 25, 2012 | RLD: No | RS: Yes | Type: RX